FAERS Safety Report 6869504-6 (Version None)
Quarter: 2010Q3

REPORT INFORMATION
  Report Type: 
  Country: None (occurrence: None)
  Receive Date: 20100721
  Receipt Date: 20100721
  Transmission Date: 20110219
  Serious: No
  Sender: FDA-Public Use
  Company Number: None

PATIENT
  Age: 61 Year
  Sex: Male
  Weight: 72.5755 kg

DRUGS (2)
  1. NIASPAN [Suspect]
     Indication: BLOOD CHOLESTEROL ABNORMAL
     Dosage: 1000MG 1 PO
     Route: 048
     Dates: start: 20100625, end: 20100625
  2. TAKING NO OTHER MEDICATIONS. [Concomitant]

REACTIONS (1)
  - DRUG HYPERSENSITIVITY [None]
